FAERS Safety Report 7901579 (Version 2)
Quarter: 2015Q2

REPORT INFORMATION
  Report Type: Spontaneous
  Country: FR (occurrence: FR)
  Receive Date: 20110415
  Receipt Date: 20150601
  Transmission Date: 20150821
  Serious: Yes (Other)
  Sender: FDA-Public Use
  Company Number: PHHY2011FR29471

PATIENT
  Age: 26 Year
  Sex: Female
  Weight: 50 kg

DRUGS (2)
  1. IMATINIB [Suspect]
     Active Substance: IMATINIB
     Indication: SYSTEMIC SCLEROSIS
     Dosage: 600 MG, DAILY
     Route: 048
     Dates: start: 2006, end: 201002
  2. IMATINIB [Suspect]
     Active Substance: IMATINIB
     Dosage: 400 MG, DAILY
     Route: 048
     Dates: start: 201002, end: 20110210

REACTIONS (4)
  - Hepatic fibrosis [Recovering/Resolving]
  - Hepatic failure [Unknown]
  - Chronic hepatitis B [Unknown]
  - Transaminases increased [Recovering/Resolving]

NARRATIVE: CASE EVENT DATE: 201002
